FAERS Safety Report 5845150-8 (Version None)
Quarter: 2008Q3

REPORT INFORMATION
  Report Type: 
  Country: None (occurrence: None)
  Receive Date: 20080814
  Receipt Date: 20080804
  Transmission Date: 20090109
  Serious: Yes (Other)
  Sender: FDA-Public Use
  Company Number: PHNU2006DE03693

PATIENT
  Sex: Female
  Weight: 70 kg

DRUGS (2)
  1. SANDIMMUNE [Suspect]
     Indication: RENAL TRANSPLANT
     Dosage: 25 MG, QD
     Dates: start: 19910101
  2. MYFORTIC [Suspect]
     Indication: RENAL TRANSPLANT
     Dosage: UNK
     Route: 048
     Dates: start: 20050101

REACTIONS (7)
  - ALOPECIA [None]
  - ATRIAL FIBRILLATION [None]
  - BASAL CELL CARCINOMA [None]
  - BREAST CANCER [None]
  - GINGIVAL HYPERPLASIA [None]
  - HYPERTENSION [None]
  - OVARIAN NEOPLASM [None]
